FAERS Safety Report 13912283 (Version 2)
Quarter: 2017Q3

REPORT INFORMATION
  Report Type: Spontaneous
  Country: FR (occurrence: FR)
  Receive Date: 20170828
  Receipt Date: 20170829
  Transmission Date: 20171127
  Serious: Yes (Other)
  Sender: FDA-Public Use
  Company Number: FR-PFIZER INC-2017365996

PATIENT
  Age: 22 Year
  Sex: Male

DRUGS (10)
  1. PRODILANTIN [Suspect]
     Active Substance: FOSPHENYTOIN SODIUM
     Indication: STATUS EPILEPTICUS
     Dosage: 375 MG, 2X/DAY
     Route: 041
     Dates: start: 20170717, end: 20170722
  2. MERONEM [Suspect]
     Active Substance: MEROPENEM
     Indication: MENINGITIS
     Dosage: 2 G, 3X/DAY
     Route: 041
     Dates: start: 20170804, end: 20170805
  3. CYAMEMAZINE [Concomitant]
     Active Substance: CYAMEMAZINE
  4. ENOXAPARIN [Concomitant]
     Active Substance: ENOXAPARIN
  5. DI-HYDAN [Suspect]
     Active Substance: PHENYTOIN
     Indication: STATUS EPILEPTICUS
     Dosage: 100 MG, 3X/DAY
     Route: 048
     Dates: start: 20170722, end: 20170807
  6. CETIRIZINE [Concomitant]
     Active Substance: CETIRIZINE HYDROCHLORIDE
  7. KEPPRA [Concomitant]
     Active Substance: LEVETIRACETAM
     Dosage: UNK
     Dates: start: 20170717
  8. ZYVOXID [Suspect]
     Active Substance: LINEZOLID
     Indication: MENINGITIS
     Dosage: 600 MG, 3X/DAY
     Route: 041
     Dates: start: 20170804, end: 20170805
  9. CLORAZEPATE DIPOTASSIUM. [Concomitant]
     Active Substance: CLORAZEPATE DIPOTASSIUM
  10. METHADONE [Concomitant]
     Active Substance: METHADONE HYDROCHLORIDE

REACTIONS (1)
  - Rash morbilliform [Recovered/Resolved]

NARRATIVE: CASE EVENT DATE: 20170804
